FAERS Safety Report 7688762 (Version 4)
Quarter: 2012Q4

REPORT INFORMATION
  Report Type: 
  Country: FR (occurrence: FR)
  Receive Date: 20101201
  Receipt Date: 20121221
  Transmission Date: 20130627
  Serious: Yes (Hospitalization, Other)
  Sender: FDA-Public Use
  Company Number: FR-ABBOTT-10P-056-0687945-00

PATIENT
  Age: 26 Year
  Sex: Female

DRUGS (6)
  1. DEPAKINE CHRONO TABLETS [Suspect]
     Indication: EPILEPSY
     Route: 048
     Dates: end: 201005
  2. URBANYL [Suspect]
     Indication: EPILEPSY
     Route: 048
     Dates: end: 201005
  3. KEPPRA [Suspect]
     Indication: EPILEPSY
     Dates: end: 201005
  4. DONORMYL [Suspect]
     Indication: INTENTIONAL OVERDOSE
     Route: 048
     Dates: start: 20100522, end: 20100522
  5. DONORMYL [Suspect]
     Indication: TOXICITY TO VARIOUS AGENTS
  6. CIPROFLOXACIN [Concomitant]
     Indication: PRODUCT USED FOR UNKNOWN INDICATION
     Dates: start: 20100522, end: 20100522

REACTIONS (3)
  - Toxicity to various agents [Unknown]
  - Convulsion [Unknown]
  - Exposure during pregnancy [None]
